FAERS Safety Report 8610942 (Version 4)
Quarter: 2013Q3

REPORT INFORMATION
  Report Type: Spontaneous
  Country: JP (occurrence: JP)
  Receive Date: 20120612
  Receipt Date: 20130716
  Transmission Date: 20140515
  Serious: Yes (Life-Threatening, Hospitalization)
  Sender: FDA-Public Use
  Company Number: JP-GLAXOSMITHKLINE-B0804437A

PATIENT
  Age: 37 Year
  Sex: Female

DRUGS (8)
  1. LAMICTAL [Suspect]
     Indication: BIPOLAR II DISORDER
     Dosage: 25MG PER DAY
     Route: 048
     Dates: start: 20120507, end: 20120523
  2. DEPAKENE-R [Suspect]
     Indication: BIPOLAR II DISORDER
     Dosage: 600MG PER DAY
     Route: 048
  3. DESYREL [Concomitant]
     Indication: BIPOLAR II DISORDER
     Dosage: 50MG PER DAY
     Route: 048
  4. LANDSEN [Concomitant]
     Indication: BIPOLAR II DISORDER
     Dosage: 1MG PER DAY
     Route: 048
  5. DOGMATYL [Concomitant]
     Indication: BIPOLAR II DISORDER
     Route: 048
  6. RISPERDAL [Concomitant]
     Indication: BIPOLAR II DISORDER
     Route: 048
  7. PURSENNID [Concomitant]
     Indication: CONSTIPATION
     Route: 048
  8. MAGMITT [Concomitant]
     Indication: CONSTIPATION
     Route: 048

REACTIONS (30)
  - Disseminated intravascular coagulation [Recovered/Resolved]
  - Meningitis aseptic [Recovered/Resolved]
  - Drug reaction with eosinophilia and systemic symptoms [Recovered/Resolved]
  - Hepatic enzyme increased [Recovering/Resolving]
  - Blood lactate dehydrogenase increased [Recovering/Resolving]
  - Lymphadenopathy [Unknown]
  - Drug eruption [Recovered/Resolved]
  - General physical health deterioration [Recovered/Resolved]
  - Pyrexia [Unknown]
  - Viral infection [Unknown]
  - Blood fibrinogen decreased [Unknown]
  - Fibrin degradation products increased [Unknown]
  - Fibrin D dimer increased [Unknown]
  - Platelet count decreased [Unknown]
  - Protein total decreased [Unknown]
  - Blood albumin decreased [Unknown]
  - C-reactive protein increased [Unknown]
  - Aspartate aminotransferase increased [Unknown]
  - Alanine aminotransferase increased [Unknown]
  - Blood alkaline phosphatase increased [Unknown]
  - Leucine aminopeptidase increased [Unknown]
  - Blood cholinesterase decreased [Unknown]
  - Herpes simplex serology positive [Unknown]
  - Varicella virus test positive [Unknown]
  - Local swelling [Unknown]
  - Hepatic function abnormal [Unknown]
  - Decreased appetite [Unknown]
  - Malaise [Unknown]
  - Kidney enlargement [Unknown]
  - Rash [Unknown]
